FAERS Safety Report 9114858 (Version 1)
Quarter: 2013Q1

REPORT INFORMATION
  Report Type: Spontaneous
  Country: US (occurrence: None)
  Receive Date: 20130128
  Receipt Date: 20130128
  Transmission Date: 20140127
  Serious: Yes (Hospitalization)
  Sender: FDA-Public Use
  Company Number: JPI-P-029109

PATIENT
  Age: 68 Year
  Sex: Female
  Weight: 54.43 kg

DRUGS (6)
  1. XYREM (500 MILLIGRAM/MILLILITERS, SOLUTION) (SODIUM OXYBATE) [Suspect]
     Indication: NARCOLEPSY
     Route: 048
     Dates: start: 200605
  2. ESOMEPRAZOLE MAGNESIUM [Concomitant]
  3. POTASSIUM [Concomitant]
  4. EZETIMIBE [Concomitant]
  5. BUPROPION [Concomitant]
  6. DONEPEZIL HYDROCHLORIDE [Concomitant]

REACTIONS (2)
  - Chest pain [None]
  - Gait disturbance [None]
